FAERS Safety Report 4487323-5 (Version None)
Quarter: 2004Q4

REPORT INFORMATION
  Report Type: 
  Country: None (occurrence: None)
  Receive Date: 20041022
  Receipt Date: 20041008
  Transmission Date: 20050328
  Serious: Yes (Hospitalization)
  Sender: FDA-Public Use
  Company Number: S04-FRA-06715-01

PATIENT
  Age: 50 Year
  Sex: Male
  Weight: 60 kg

DRUGS (6)
  1. CITALOPRAM HYDROBROMIDE [Suspect]
     Indication: DYSTHYMIC DISORDER
     Dosage: 20 MG QD PO
     Route: 048
     Dates: start: 20040730
  2. MYAMBUTOL [Suspect]
     Indication: PULMONARY TUBERCULOSIS
     Dosage: 3 QD PO
     Route: 048
     Dates: end: 20040813
  3. MYOLASTAN         (TETRAZEPAM) [Suspect]
     Dosage: 1 QD PO
     Route: 048
  4. RIFAMPICIN [Suspect]
     Indication: PULMONARY TUBERCULOSIS
     Dosage: 5 QD PO
     Route: 048
     Dates: start: 20040716, end: 20040813
  5. ZELITRX (VALACICLOVIR) [Suspect]
     Dosage: 1 BID PO
     Route: 048
     Dates: start: 20040811, end: 20040813
  6. PIRILENE (PYRAZINAMIDE) [Concomitant]

REACTIONS (3)
  - ALANINE AMINOTRANSFERASE INCREASED [None]
  - ASPARTATE AMINOTRANSFERASE INCREASED [None]
  - GAMMA-GLUTAMYLTRANSFERASE INCREASED [None]
